FAERS Safety Report 21296315 (Version 1)
Quarter: 2022Q3

REPORT INFORMATION
  Report Type: Spontaneous
  Country: US (occurrence: US)
  Receive Date: 20220906
  Receipt Date: 20220906
  Transmission Date: 20221026
  Serious: Yes (Hospitalization)
  Sender: FDA-Public Use
  Company Number: US-STRIDES ARCOLAB LIMITED-2022SP011127

PATIENT
  Sex: Female

DRUGS (22)
  1. TENOFOVIR DISOPROXIL FUMARATE [Suspect]
     Active Substance: TENOFOVIR DISOPROXIL FUMARATE
     Indication: Perinatal HIV infection
     Dosage: UNK (AT THE AGE OF 15.5 YEARS)
     Route: 065
  2. ABACAVIR [Suspect]
     Active Substance: ABACAVIR
     Indication: Perinatal HIV infection
     Dosage: UNK, (AT THE AGE OF 7.6-8.0 YEARS)
     Route: 065
  3. ABACAVIR [Suspect]
     Active Substance: ABACAVIR
     Dosage: UNK (AT THE AGE OF 15.5 YEARS)
     Route: 065
  4. ZIDOVUDINE [Suspect]
     Active Substance: ZIDOVUDINE
     Indication: Perinatal HIV infection
     Dosage: UNK
     Route: 065
  5. LAMIVUDINE [Suspect]
     Active Substance: LAMIVUDINE
     Indication: Perinatal HIV infection
     Dosage: UNK
     Route: 065
  6. STAVUDINE [Suspect]
     Active Substance: STAVUDINE
     Indication: Perinatal HIV infection
     Dosage: UNK (AT THE AGE OF 8 MONTHS), ALONG WITH NELFINAVIR AND LAMIVUDINE
     Route: 065
  7. STAVUDINE [Suspect]
     Active Substance: STAVUDINE
     Dosage: UNK,  ALONG WITH DIDANOSINE AND RITONAVIR (AT AGE OF 1.4-2.9 YEARS)
     Route: 065
  8. STAVUDINE [Suspect]
     Active Substance: STAVUDINE
     Dosage: UNK ALONG WITH NEVIRAPINE AND AMPRENAVIR (AT AGE OF 2.9-3.3 YEARS)
     Route: 065
  9. STAVUDINE [Suspect]
     Active Substance: STAVUDINE
     Dosage: UNK, ALONG WITH NEVIRAPINE AND NELFINAVIR (AT AGE OF 3.3-5.3 YEARS)
     Route: 065
  10. STAVUDINE [Suspect]
     Active Substance: STAVUDINE
     Dosage: UNK, ALONG WITH NEVIRAPINE AND LOPINAVIR/RITONAVIR (AT AGE 6.0-7.6 YEARS )
     Route: 065
  11. STAVUDINE [Suspect]
     Active Substance: STAVUDINE
     Dosage: UNK ALONG WITH ABACAVIR, AMPRENAVIR AND LOPINAVIR/RITONAVIR (AT AGE OF 7.6-8.0 YEARS)
     Route: 065
  12. DIDANOSINE [Suspect]
     Active Substance: DIDANOSINE
     Indication: Perinatal HIV infection
     Dosage: UNK (AGE OF 1.4-2.9 YEARS)
     Route: 065
  13. NELFINAVIR [Concomitant]
     Active Substance: NELFINAVIR
     Indication: Perinatal HIV infection
     Dosage: UNK (AGE OF 3.3-5.3 YEARS )
     Route: 065
  14. RITONAVIR [Concomitant]
     Active Substance: RITONAVIR
     Indication: Perinatal HIV infection
     Dosage: UNK (AGE OF 1.4-2.9 YEARS)
     Route: 065
  15. NEVIRAPINE [Concomitant]
     Active Substance: NEVIRAPINE
     Indication: Perinatal HIV infection
     Dosage: UNK (THE AGE OF 2.9-3.3 YEARS)
     Route: 065
  16. NEVIRAPINE [Concomitant]
     Active Substance: NEVIRAPINE
     Dosage: UNK (AGE OF 3.3-5.3 YEARS)
     Route: 065
  17. NEVIRAPINE [Concomitant]
     Active Substance: NEVIRAPINE
     Dosage: UNK (AGE 6.0-7.6 YEARS)
     Route: 065
  18. AMPRENAVIR [Concomitant]
     Active Substance: AMPRENAVIR
     Indication: Perinatal HIV infection
     Dosage: UNK (AGE OF 2.9-3.3 YEARS)
     Route: 065
  19. AMPRENAVIR [Concomitant]
     Active Substance: AMPRENAVIR
     Dosage: UNK (AGE OF 7.6-8.0 YEARS)
     Route: 065
  20. LOPINAVIR\RITONAVIR [Concomitant]
     Active Substance: LOPINAVIR\RITONAVIR
     Indication: Perinatal HIV infection
     Dosage: UNK (THE AGE 6.0-7.6 YEARS)
     Route: 065
  21. LOPINAVIR\RITONAVIR [Concomitant]
     Active Substance: LOPINAVIR\RITONAVIR
     Dosage: UNK (AGE OF 7.6-8.0 YEARS)
     Route: 065
  22. LOPINAVIR\RITONAVIR [Concomitant]
     Active Substance: LOPINAVIR\RITONAVIR
     Dosage: UNK (AT THE AGE OF 15.5 YEARS)
     Route: 065

REACTIONS (2)
  - Gastrointestinal disorder [Unknown]
  - Pancreatitis relapsing [Unknown]
